FAERS Safety Report 8556639-5 (Version None)
Quarter: 2012Q3

REPORT INFORMATION
  Report Type: 
  Country: None (occurrence: None)
  Receive Date: 20120726
  Receipt Date: 20120726
  Transmission Date: 20120928
  Serious: No
  Sender: FDA-Public Use
  Company Number: None

PATIENT
  Age: 61 Year
  Sex: Male

DRUGS (2)
  1. VELCADE [Suspect]
     Indication: MULTIPLE MYELOMA
     Dates: start: 20090801, end: 20100601
  2. REVLIMID/DEXAMETHASONE [Suspect]
     Indication: MULTIPLE MYELOMA
     Dates: start: 20090801

REACTIONS (4)
  - NEUROPATHY PERIPHERAL [None]
  - FATIGUE [None]
  - DECREASED APPETITE [None]
  - GASTROINTESTINAL DISORDER [None]
